FAERS Safety Report 16342124 (Version 2)
Quarter: 2019Q2

REPORT INFORMATION
  Report Type: Spontaneous
  Country: US (occurrence: US)
  Receive Date: 20190522
  Receipt Date: 20190531
  Transmission Date: 20190711
  Serious: No
  Sender: FDA-Public Use
  Company Number: US-AMGEN-USASP2019076341

PATIENT
  Sex: Female

DRUGS (39)
  1. ALLEGRA ALLERGY [Concomitant]
     Active Substance: FEXOFENADINE HYDROCHLORIDE
     Dosage: UNK
  2. BACITRACIN OPHTHALMIC [Concomitant]
  3. HYDROXYCHLOROQUINE [Concomitant]
     Active Substance: HYDROXYCHLOROQUINE
     Dosage: UNK
     Dates: start: 200709
  4. PENICILLIN [BENZYLPENICILLIN] [Concomitant]
     Active Substance: PENICILLIN G
  5. PRAVASTATIN. [Concomitant]
     Active Substance: PRAVASTATIN
  6. LEFLUNOMIDE. [Concomitant]
     Active Substance: LEFLUNOMIDE
     Indication: RHEUMATOID ARTHRITIS
     Dosage: UNK
     Dates: start: 20160223, end: 20160602
  7. OSCAL [CALCITRIOL] [Concomitant]
  8. AMLODIPINE [Concomitant]
     Active Substance: AMLODIPINE BESYLATE
     Indication: HYPERTENSION
  9. ASPIRIN 81 [Concomitant]
     Active Substance: ASPIRIN
  10. CLINDAMYCIN PALMITATE HCL [Concomitant]
     Active Substance: CLINDAMYCIN PALMITATE HYDROCHLORIDE
  11. DILTIAZEM. [Concomitant]
     Active Substance: DILTIAZEM
     Indication: HYPERTENSION
     Dosage: UNK
  12. MAXITROL [Concomitant]
     Active Substance: DEXAMETHASONE\NEOMYCIN SULFATE\POLYMYXIN B SULFATE
     Indication: EYE SWELLING
  13. ENBREL [Suspect]
     Active Substance: ETANERCEPT
     Indication: RHEUMATOID ARTHRITIS
     Dosage: UNK
     Route: 065
     Dates: start: 20160303, end: 20160426
  14. BUPROPION. [Concomitant]
     Active Substance: BUPROPION
     Indication: DEPRESSION
  15. CORTISPORIN EYE [Concomitant]
  16. CRESTOR [Concomitant]
     Active Substance: ROSUVASTATIN CALCIUM
  17. GABAPENTIN. [Concomitant]
     Active Substance: GABAPENTIN
     Indication: RHEUMATOID ARTHRITIS
  18. LORAZEPAM. [Concomitant]
     Active Substance: LORAZEPAM
     Dosage: UNK
     Dates: start: 201512
  19. CALCIUM [Concomitant]
     Active Substance: CALCIUM
  20. CALTRATE [Concomitant]
     Active Substance: CALCIUM CARBONATE
  21. ERYTHRO BASE [Concomitant]
     Active Substance: ERYTHROMYCIN
  22. FLUOXETINE [Concomitant]
     Active Substance: FLUOXETINE HYDROCHLORIDE
     Indication: DEPRESSION
  23. NITRO BID [Concomitant]
     Dosage: UNK
     Dates: start: 200801
  24. VENLAFAXINE [Concomitant]
     Active Substance: VENLAFAXINE HYDROCHLORIDE
  25. TRAZODONE [Concomitant]
     Active Substance: TRAZODONE HYDROCHLORIDE
     Dosage: UNK
     Dates: start: 20151215
  26. CELEBREX [Concomitant]
     Active Substance: CELECOXIB
     Indication: RHEUMATOID ARTHRITIS
     Dosage: UNK
     Dates: start: 201002, end: 20170311
  27. DOXAZOSIN [Concomitant]
     Active Substance: DOXAZOSIN\DOXAZOSIN MESYLATE
     Indication: HYPERTENSION
  28. ERYTHROMYCIN. [Concomitant]
     Active Substance: ERYTHROMYCIN
  29. NAPROXEN SODIUM. [Concomitant]
     Active Substance: NAPROXEN SODIUM
     Indication: BACK PAIN
  30. OFLOXACIN. [Concomitant]
     Active Substance: OFLOXACIN
  31. TRIAMCINOLONE ACETONIDE. [Concomitant]
     Active Substance: TRIAMCINOLONE ACETONIDE
  32. HYDROCHLOROTHIAZIDE. [Concomitant]
     Active Substance: HYDROCHLOROTHIAZIDE
     Indication: HYPERTENSION
  33. LIDOCAINE [CHLORHEXIDINE;LIDOCAINE] [Concomitant]
  34. LIPITOR [Concomitant]
     Active Substance: ATORVASTATIN CALCIUM
  35. NIACIN. [Concomitant]
     Active Substance: NIACIN
  36. NIFEDIPINE MYLAN [Concomitant]
     Active Substance: NIFEDIPINE
  37. NORFLEX [Concomitant]
     Active Substance: ORPHENADRINE CITRATE
  38. NITROGLYCERIN. [Concomitant]
     Active Substance: NITROGLYCERIN
  39. SERTRALINE [Concomitant]
     Active Substance: SERTRALINE HYDROCHLORIDE
     Dosage: UNK

REACTIONS (2)
  - Nasopharyngitis [Unknown]
  - Nausea [Unknown]
